FAERS Safety Report 8530007-4 (Version None)
Quarter: 2012Q3

REPORT INFORMATION
  Report Type: 
  Country: None (occurrence: None)
  Receive Date: 20120723
  Receipt Date: 20120716
  Transmission Date: 20120928
  Serious: Yes (Other)
  Sender: FDA-Public Use
  Company Number: PHEH2012US014070

PATIENT
  Sex: Female

DRUGS (1)
  1. FANAPT [Suspect]
     Dosage: UNK UKN, UNK

REACTIONS (1)
  - APPARENT DEATH [None]
